FAERS Safety Report 8104327-1 (Version None)
Quarter: 2012Q1

REPORT INFORMATION
  Report Type: 
  Country: None (occurrence: None)
  Receive Date: 20120130
  Receipt Date: 20120127
  Transmission Date: 20120608
  Serious: Yes (Other)
  Sender: FDA-Public Use
  Company Number: JP-B.I. PHARMACEUTICALS,INC./RIDGEFIELD-2011-BP-27450NB

PATIENT
  Age: 82 Year
  Sex: Male

DRUGS (7)
  1. SPIRIVA [Concomitant]
     Route: 065
  2. PRADAXA [Suspect]
     Indication: ATRIAL FIBRILLATION
     Dosage: 220 MG
     Route: 048
     Dates: end: 20111026
  3. TULOBUTEROL [Concomitant]
     Route: 065
  4. ASPIRIN [Concomitant]
     Route: 065
  5. LANSOPRAZOLE [Concomitant]
     Route: 065
  6. DIGOXIN [Concomitant]
     Route: 065
  7. PONOPHEN [Concomitant]
     Route: 065

REACTIONS (3)
  - HAEMATOCHEZIA [None]
  - GASTRIC CANCER [None]
  - GASTRIC HAEMORRHAGE [None]
